FAERS Safety Report 8197339-3 (Version None)
Quarter: 2012Q1

REPORT INFORMATION
  Report Type: 
  Country: None (occurrence: None)
  Receive Date: 20120309
  Receipt Date: 20110426
  Transmission Date: 20120608
  Serious: No
  Sender: FDA-Public Use
  Company Number: US-BRISTOL-MYERS SQUIBB COMPANY-15701352

PATIENT
  Age: 69 Year
  Sex: Male

DRUGS (1)
  1. RECOTHROM [Suspect]
     Indication: SURGERY
     Dosage: TOTAL OF 2 VIALS OF 20,000 UNIT
     Route: 061
     Dates: start: 20100121, end: 20100121

REACTIONS (1)
  - DRUG INEFFECTIVE [None]
